FAERS Safety Report 12321899 (Version 1)
Quarter: 2016Q2

REPORT INFORMATION
  Report Type: Spontaneous
  Country: US (occurrence: None)
  Receive Date: 20160429
  Receipt Date: 20160429
  Transmission Date: 20160815
  Serious: Yes (Life-Threatening)
  Sender: FDA-Public Use
  Company Number: None

PATIENT
  Age: 45 Year
  Sex: Male
  Weight: 91 kg

DRUGS (1)
  1. WILATE [Suspect]
     Active Substance: HUMAN COAGULATION FACTOR VIII/VON WILLEBRAND FACTOR COMPLEX
     Indication: VON WILLEBRAND^S DISEASE
     Dosage: INTERVENOUS (NOT OTHERWISE SPECIFIED)
     Route: 042
     Dates: start: 20160427, end: 20160427

REACTIONS (7)
  - Sneezing [None]
  - Cough [None]
  - Tongue disorder [None]
  - Blood pressure decreased [None]
  - Nasal congestion [None]
  - Lip disorder [None]
  - Lacrimation increased [None]

NARRATIVE: CASE EVENT DATE: 20160427
